FAERS Safety Report 8181405-2 (Version None)
Quarter: 2012Q1

REPORT INFORMATION
  Report Type: 
  Country: None (occurrence: None)
  Receive Date: 20120302
  Receipt Date: 20120229
  Transmission Date: 20120608
  Serious: Yes (Other)
  Sender: FDA-Public Use
  Company Number: US-AMGEN-USASP2012003054

PATIENT
  Age: 31 Year
  Sex: Male

DRUGS (1)
  1. NPLATE [Suspect]
     Indication: PRODUCT USED FOR UNKNOWN INDICATION
     Dosage: 1000 MUG, QWK
     Dates: start: 20110609

REACTIONS (3)
  - ANTIBODY TEST POSITIVE [None]
  - NON-NEUTRALISING ANTIBODIES POSITIVE [None]
  - THERAPEUTIC RESPONSE DECREASED [None]
